FAERS Safety Report 6235211-6 (Version None)
Quarter: 2009Q2

REPORT INFORMATION
  Report Type: 
  Country: None (occurrence: None)
  Receive Date: 20090618
  Receipt Date: 20090603
  Transmission Date: 20091009
  Serious: Yes (Hospitalization)
  Sender: FDA-Public Use
  Company Number: DE-GENENTECH-283604

PATIENT
  Sex: Male

DRUGS (5)
  1. BEVACIZUMAB [Suspect]
     Indication: COLORECTAL CANCER METASTATIC
     Dosage: 170 MG, DAY 1
     Route: 042
     Dates: start: 20090326
  2. BEVACIZUMAB [Suspect]
     Dosage: 400 MG, DAY 15
  3. OXALIPLATIN [Suspect]
     Indication: COLORECTAL CANCER METASTATIC
     Dosage: 91 MG, 1/WEEK
     Route: 042
     Dates: start: 20090326
  4. FLUOROURACIL [Suspect]
     Indication: COLORECTAL CANCER METASTATIC
     Dosage: 3650 MG, 1/WEEK
     Route: 042
     Dates: start: 20090326
  5. FOLIC ACID [Suspect]
     Indication: COLORECTAL CANCER METASTATIC
     Dosage: 910 MG, 1/WEEK
     Route: 042

REACTIONS (3)
  - GASTROINTESTINAL INFLAMMATION [None]
  - OESOPHAGITIS [None]
  - PHARYNGEAL INFLAMMATION [None]
